APPROVED DRUG PRODUCT: NAPROXEN
Active Ingredient: NAPROXEN
Strength: 500MG
Dosage Form/Route: TABLET;ORAL
Application: A074457 | Product #003
Applicant: WATSON LABORATORIES INC
Approved: May 31, 1995 | RLD: No | RS: No | Type: DISCN